FAERS Safety Report 20750441 (Version 5)
Quarter: 2022Q3

REPORT INFORMATION
  Report Type: Spontaneous
  Country: US (occurrence: US)
  Receive Date: 20220426
  Receipt Date: 20220822
  Transmission Date: 20221026
  Serious: No
  Sender: FDA-Public Use
  Company Number: US-PFIZER INC-202101236365

PATIENT
  Age: 57 Year
  Sex: Male

DRUGS (2)
  1. SUTENT [Suspect]
     Active Substance: SUNITINIB MALATE
     Dosage: 37.5 MG, CYCLIC ((CAPSULE FOR 14 DAYS THEN OFF 7 DAYS))
     Route: 048
  2. SUTENT [Suspect]
     Active Substance: SUNITINIB MALATE
     Dosage: 25 MG, CYCLIC (1 TABLET PO (ORALLY) DAYS 1-14 THEN OFF 7 DAYS)
     Route: 048

REACTIONS (2)
  - Hypoacusis [Unknown]
  - Product prescribing error [Unknown]
